FAERS Safety Report 5518468-6 (Version None)
Quarter: 2007Q4

REPORT INFORMATION
  Report Type: 
  Country: None (occurrence: None)
  Receive Date: 20071113
  Receipt Date: 20071113
  Transmission Date: 20080405
  Serious: Yes (Hospitalization)
  Sender: FDA-Public Use
  Company Number: None

PATIENT
  Sex: Male
  Weight: 13.3 kg

DRUGS (3)
  1. MERCAPTOPURINE [Suspect]
     Dosage: 100 MG
  2. METHOTREXATE [Suspect]
     Dosage: 8 MG
  3. VINCRISTINE SULFATE [Suspect]
     Dosage: .9 MG

REACTIONS (7)
  - COAGULATION FACTOR VIII LEVEL INCREASED [None]
  - DROOLING [None]
  - FACIAL PALSY [None]
  - HEMIPARESIS [None]
  - IRRITABILITY [None]
  - PYREXIA [None]
  - THROMBOSIS [None]
